FAERS Safety Report 9850026 (Version 4)
Quarter: 2015Q1

REPORT INFORMATION
  Report Type: Spontaneous
  Country: US (occurrence: US)
  Receive Date: 20140128
  Receipt Date: 20150107
  Transmission Date: 20150721
  Serious: Yes (Hospitalization, Other)
  Sender: FDA-Public Use
  Company Number: PHEH2014US001808

PATIENT
  Age: 22 Year
  Sex: Female

DRUGS (62)
  1. CLOZAPINE. [Suspect]
     Active Substance: CLOZAPINE
     Dosage: 100 MG,
     Route: 065
     Dates: start: 20090123
  2. CLOZAPINE. [Suspect]
     Active Substance: CLOZAPINE
     Dosage: 100 MG,
     Route: 065
     Dates: start: 20090218
  3. CLOZAPINE. [Suspect]
     Active Substance: CLOZAPINE
     Dosage: 100 MG,
     Route: 065
     Dates: start: 20090401
  4. CLOZAPINE. [Suspect]
     Active Substance: CLOZAPINE
     Dosage: 100 MG,
     Route: 065
     Dates: start: 20100120
  5. CLOZAPINE. [Suspect]
     Active Substance: CLOZAPINE
     Dosage: 100 MG,
     Route: 065
     Dates: start: 20100803
  6. CLOZAPINE. [Suspect]
     Active Substance: CLOZAPINE
     Dosage: 20 MG,
     Route: 065
     Dates: start: 20100901
  7. TOPROL XL [Concomitant]
     Active Substance: METOPROLOL SUCCINATE
     Indication: PRODUCT USED FOR UNKNOWN INDICATION
     Dosage: 0.5 DF, QD ONE HALF TABLET DAILY
     Route: 065
  8. VITAMIN E [Concomitant]
     Active Substance: .ALPHA.-TOCOPHEROL
     Indication: PRODUCT USED FOR UNKNOWN INDICATION
     Dosage: 800 IU,
     Route: 065
  9. CLOZARIL [Suspect]
     Active Substance: CLOZAPINE
     Indication: SCHIZOPHRENIA
     Dosage: 100 MG, UNK
     Route: 065
  10. CLOZAPINE. [Suspect]
     Active Substance: CLOZAPINE
     Dosage: 100 MG,
     Route: 065
     Dates: start: 20090501
  11. CLOZAPINE. [Suspect]
     Active Substance: CLOZAPINE
     Dosage: 100 MG, UNK
     Route: 065
     Dates: start: 20090610
  12. CLOZAPINE. [Suspect]
     Active Substance: CLOZAPINE
     Dosage: 100 MG,
     Route: 065
     Dates: start: 20091221
  13. CLOZAPINE. [Suspect]
     Active Substance: CLOZAPINE
     Dosage: 25 MG,
     Route: 065
     Dates: start: 20101005
  14. CLOZAPINE. [Suspect]
     Active Substance: CLOZAPINE
     Dosage: 100 MG,
     Route: 065
     Dates: start: 20090622
  15. CLOZAPINE. [Suspect]
     Active Substance: CLOZAPINE
     Dosage: 25 MG,
     Route: 065
     Dates: start: 20090624
  16. CLOZAPINE. [Suspect]
     Active Substance: CLOZAPINE
     Dosage: 25 MG,
     Route: 065
     Dates: start: 20091123
  17. CLOZAPINE. [Suspect]
     Active Substance: CLOZAPINE
     Dosage: 100 MG,
     Route: 065
     Dates: start: 20100901
  18. CLOZAPINE. [Suspect]
     Active Substance: CLOZAPINE
     Dosage: 100 MG,
     Route: 065
     Dates: start: 20101029
  19. CLOZAPINE. [Suspect]
     Active Substance: CLOZAPINE
     Dosage: 100 MG,
     Route: 065
     Dates: start: 20110310
  20. CLOZAPINE. [Suspect]
     Active Substance: CLOZAPINE
     Dosage: 100 MG,
     Route: 065
     Dates: start: 20111118
  21. CLOZARIL [Suspect]
     Active Substance: CLOZAPINE
     Dosage: 200 MG, TID
     Route: 065
  22. CLOZAPINE. [Suspect]
     Active Substance: CLOZAPINE
     Indication: PRODUCT USED FOR UNKNOWN INDICATION
     Dosage: 100 MG, TAKE TWO TABLETS IN MORNING AND AT BED TIME
     Route: 065
     Dates: start: 2004
  23. CLOZAPINE. [Suspect]
     Active Substance: CLOZAPINE
     Dosage: 100 MG,
     Route: 065
     Dates: start: 20090314
  24. CLOZAPINE. [Suspect]
     Active Substance: CLOZAPINE
     Dosage: 100 MG, UNK
     Route: 065
     Dates: start: 20090528
  25. CLOZAPINE. [Suspect]
     Active Substance: CLOZAPINE
     Dosage: 25 MG
     Route: 065
     Dates: start: 20091019
  26. CLOZAPINE. [Suspect]
     Active Substance: CLOZAPINE
     Dosage: 15 MG,
     Route: 065
     Dates: start: 20091221
  27. CLOZAPINE. [Suspect]
     Active Substance: CLOZAPINE
     Dosage: 100 MG,
     Route: 065
     Dates: start: 20100324
  28. CLOZAPINE. [Suspect]
     Active Substance: CLOZAPINE
     Dosage: 100 MG,
     Route: 065
     Dates: start: 20100701
  29. CLOZAPINE. [Suspect]
     Active Substance: CLOZAPINE
     Dosage: 100 MG,
     Route: 065
     Dates: start: 20110516
  30. ALBUTEROL. [Concomitant]
     Active Substance: ALBUTEROL
     Indication: DYSPNOEA
     Dosage: 108 MCG/ACT, 2 PUFF EVERY 4 HOURS
     Route: 055
  31. CLOZARIL [Suspect]
     Active Substance: CLOZAPINE
     Dosage: 600 MG, QD
     Route: 065
  32. CLOZAPINE. [Suspect]
     Active Substance: CLOZAPINE
     Dosage: 900 MG, BID
     Route: 065
     Dates: start: 2004, end: 2010
  33. CLOZAPINE. [Suspect]
     Active Substance: CLOZAPINE
     Dosage: 100 MG,
     Route: 065
     Dates: start: 20090514
  34. CLOZAPINE. [Suspect]
     Active Substance: CLOZAPINE
     Dosage: 100 MG,
     Route: 065
     Dates: start: 20090916
  35. CLOZAPINE. [Suspect]
     Active Substance: CLOZAPINE
     Dosage: 100 MG,
     Route: 065
     Dates: start: 20100216
  36. CLOZAPINE. [Suspect]
     Active Substance: CLOZAPINE
     Dosage: 100 MG,
     Route: 065
     Dates: start: 20101006
  37. ATIVAN [Concomitant]
     Active Substance: LORAZEPAM
     Indication: PRODUCT USED FOR UNKNOWN INDICATION
     Dosage: 0.5 MG, UNK
  38. CLOZAPINE. [Suspect]
     Active Substance: CLOZAPINE
     Dosage: 100 MG,
     Route: 065
     Dates: start: 20090302
  39. CLOZAPINE. [Suspect]
     Active Substance: CLOZAPINE
     Dosage: 100 MG
     Route: 065
     Dates: start: 20090824
  40. CLOZAPINE. [Suspect]
     Active Substance: CLOZAPINE
     Dosage: 25 MG,
     Route: 065
     Dates: start: 20091019
  41. CLOZAPINE. [Suspect]
     Active Substance: CLOZAPINE
     Dosage: 100 MG,
     Route: 065
     Dates: start: 20110110
  42. CLOZAPINE. [Suspect]
     Active Substance: CLOZAPINE
     Dosage: 100 MG,
     Route: 065
     Dates: start: 20110613
  43. CLOZAPINE. [Suspect]
     Active Substance: CLOZAPINE
     Dosage: 100 MG,
     Route: 065
     Dates: start: 20110713
  44. CLOZAPINE. [Suspect]
     Active Substance: CLOZAPINE
     Dosage: 100 MG,
     Route: 065
     Dates: start: 20110815
  45. SYNTHROID [Concomitant]
     Active Substance: LEVOTHYROXINE SODIUM
     Indication: PRODUCT USED FOR UNKNOWN INDICATION
     Dosage: 50 UG, QD
     Route: 048
  46. CLOZARIL [Suspect]
     Active Substance: CLOZAPINE
     Dosage: 900 MG, BID
     Route: 065
     Dates: end: 2010
  47. CLOZARIL [Suspect]
     Active Substance: CLOZAPINE
     Dosage: 575 MG, QD
     Route: 065
     Dates: start: 2004
  48. CLOZAPINE. [Suspect]
     Active Substance: CLOZAPINE
     Dosage: 100 MG,
     Route: 065
     Dates: start: 20081227
  49. CLOZAPINE. [Suspect]
     Active Substance: CLOZAPINE
     Dosage: 25 MG,
     Route: 065
     Dates: start: 20090824
  50. CLOZAPINE. [Suspect]
     Active Substance: CLOZAPINE
     Dosage: 100 MG,
     Route: 065
     Dates: start: 20110412
  51. CLOZAPINE. [Suspect]
     Active Substance: CLOZAPINE
     Dosage: 100 MG,
     Route: 065
     Dates: start: 20111006
  52. CELEXA [Concomitant]
     Active Substance: CITALOPRAM HYDROBROMIDE
     Indication: PRODUCT USED FOR UNKNOWN INDICATION
     Dosage: 20 MG, QD
     Route: 048
  53. CLOZAPINE. [Suspect]
     Active Substance: CLOZAPINE
     Dosage: 100 MG,
     Route: 065
     Dates: start: 20081125
  54. CLOZAPINE. [Suspect]
     Active Substance: CLOZAPINE
     Dosage: 100 MG,
     Route: 065
     Dates: start: 20140416
  55. CLOZAPINE. [Suspect]
     Active Substance: CLOZAPINE
     Dosage: 25 MG,
     Route: 065
     Dates: start: 20090921
  56. CLOZAPINE. [Suspect]
     Active Substance: CLOZAPINE
     Dosage: 100 MG,
     Route: 065
     Dates: start: 20091123
  57. CLOZAPINE. [Suspect]
     Active Substance: CLOZAPINE
     Dosage: 25 MG,
     Route: 065
     Dates: start: 20100120
  58. CLOZAPINE. [Suspect]
     Active Substance: CLOZAPINE
     Dosage: 25 MG
     Route: 065
     Dates: start: 20100216
  59. CLOZAPINE. [Suspect]
     Active Substance: CLOZAPINE
     Dosage: 100 MG,
     Route: 065
     Dates: start: 20100422
  60. CLOZAPINE. [Suspect]
     Active Substance: CLOZAPINE
     Dosage: 100 MG,
     Route: 065
     Dates: start: 20110208
  61. CLOZAPINE. [Suspect]
     Active Substance: CLOZAPINE
     Dosage: 100 MG,
     Route: 065
     Dates: start: 20110912
  62. KEPPRA [Concomitant]
     Active Substance: LEVETIRACETAM
     Indication: PRODUCT USED FOR UNKNOWN INDICATION
     Dosage: 500 MG, BID
     Route: 065

REACTIONS (44)
  - Hallucination, auditory [Recovering/Resolving]
  - Lethargy [Unknown]
  - Pruritus [Unknown]
  - Dyspnoea [Not Recovered/Not Resolved]
  - Tremor [Unknown]
  - Faecaloma [Unknown]
  - Oropharyngeal pain [Unknown]
  - Cerumen impaction [Unknown]
  - Skin irritation [Unknown]
  - Dysarthria [Unknown]
  - Fatigue [Unknown]
  - Headache [Unknown]
  - Constipation [Unknown]
  - Depression [Unknown]
  - Hypertension [Recovering/Resolving]
  - Non-alcoholic steatohepatitis [Unknown]
  - Post-traumatic stress disorder [Unknown]
  - Hypoaesthesia [Unknown]
  - Balance disorder [Unknown]
  - Sedation [Unknown]
  - Schizophrenia, paranoid type [Unknown]
  - Anxiety [Unknown]
  - PCO2 decreased [Unknown]
  - Vertigo [Unknown]
  - Liver injury [Unknown]
  - Enuresis [Unknown]
  - Weight increased [Recovered/Resolved]
  - Vitamin B complex deficiency [Unknown]
  - Abdominal pain [Unknown]
  - Hypothyroidism [Recovering/Resolving]
  - Asthma [Recovered/Resolved]
  - Hypersomnia [Unknown]
  - Somnolence [Unknown]
  - Schizoaffective disorder [Recovering/Resolving]
  - Petit mal epilepsy [Unknown]
  - Grip strength decreased [Unknown]
  - Pain of skin [Unknown]
  - Insomnia [Unknown]
  - Stress urinary incontinence [Recovered/Resolved]
  - Salivary hypersecretion [Unknown]
  - Erythema [Unknown]
  - Disturbance in attention [Unknown]
  - Libido disorder [Unknown]
  - Antipsychotic drug level above therapeutic [Unknown]

NARRATIVE: CASE EVENT DATE: 20041201
